FAERS Safety Report 5630789-5 (Version None)
Quarter: 2008Q1

REPORT INFORMATION
  Report Type: 
  Country: None (occurrence: None)
  Receive Date: 20080219
  Receipt Date: 20080208
  Transmission Date: 20080703
  Serious: Yes (Life-Threatening, Other)
  Sender: FDA-Public Use
  Company Number: CA-ABBOTT-08P-028-0438691-00

PATIENT
  Sex: Female

DRUGS (3)
  1. BIAXIN XL [Suspect]
     Indication: DRUG USE FOR UNKNOWN INDICATION
     Route: 048
  2. ESTROGENS CONJUGATED [Concomitant]
     Indication: HORMONE REPLACEMENT THERAPY
  3. CLONIDINE HYDROCHLORIDE [Concomitant]
     Indication: MENOPAUSAL SYMPTOMS
     Route: 048

REACTIONS (3)
  - PSYCHOTIC DISORDER [None]
  - SKIN LACERATION [None]
  - SUICIDE ATTEMPT [None]
